FAERS Safety Report 8812521 (Version 1)
Quarter: 2012Q4

REPORT INFORMATION
  Report Type: 
  Country: US (occurrence: US)
  Receive Date: 20120927
  Receipt Date: 20120927
  Transmission Date: 20130627
  Serious: No
  Sender: FDA-Public Use
  Company Number: US-ASTRAZENECA-2012SE72585

PATIENT
  Age: 66 Year
  Sex: Female

DRUGS (1)
  1. SYMBICORT PMDI [Suspect]
     Dosage: DOSE, FREQUENCY UNKNOWN.
     Route: 055

REACTIONS (1)
  - Dyspnoea [Unknown]
